FAERS Safety Report 6704745-X (Version None)
Quarter: 2010Q2

REPORT INFORMATION
  Report Type: 
  Country: None (occurrence: None)
  Receive Date: 20100430
  Receipt Date: 20090302
  Transmission Date: 20101027
  Serious: No
  Sender: FDA-Public Use
  Company Number: US-BAUSCH-2009BL000848

PATIENT
  Age: 60 Year
  Sex: Female

DRUGS (3)
  1. ALREX [Suspect]
     Indication: EYE ALLERGY
     Route: 047
     Dates: start: 20090101, end: 20090101
  2. ALREX [Suspect]
     Indication: EYE INFLAMMATION
     Route: 047
     Dates: start: 20090101, end: 20090101
  3. ALREX [Suspect]
     Indication: DRY EYE
     Route: 047
     Dates: start: 20090101, end: 20090101

REACTIONS (1)
  - DRUG INEFFECTIVE [None]
